FAERS Safety Report 18944131 (Version 1)
Quarter: 2021Q1

REPORT INFORMATION
  Report Type: Spontaneous
  Country: US (occurrence: US)
  Receive Date: 20210225
  Receipt Date: 20210225
  Transmission Date: 20210420
  Serious: Yes (Other)
  Sender: FDA-Public Use
  Company Number: None

PATIENT
  Age: 28 Year
  Sex: Male
  Weight: 105.75 kg

DRUGS (13)
  1. THIORIDAZINE 100 MG. [Suspect]
     Active Substance: THIORIDAZINE
     Indication: AUTISM SPECTRUM DISORDER
     Dosage: ?          QUANTITY:2 TABLET(S);?
     Route: 048
  2. DEPAKOTE [Concomitant]
     Active Substance: DIVALPROEX SODIUM
  3. MULTIVITAMIN [Concomitant]
     Active Substance: VITAMINS
  4. ABILIFY [Concomitant]
     Active Substance: ARIPIPRAZOLE
  5. VIMPAT [Concomitant]
     Active Substance: LACOSAMIDE
  6. THIORIDAZINE 100 MG. [Suspect]
     Active Substance: THIORIDAZINE
     Indication: AGGRESSION
     Dosage: ?          QUANTITY:2 TABLET(S);?
     Route: 048
  7. LUVOX [Concomitant]
     Active Substance: FLUVOXAMINE MALEATE
  8. RNS [Concomitant]
  9. FISH OIL [Concomitant]
     Active Substance: FISH OIL
  10. B50 COMPLEX [Concomitant]
  11. VITAMIN D3 [Concomitant]
     Active Substance: CHOLECALCIFEROL
  12. VNS [Concomitant]
  13. STOOL SOFTENER (DOCUSATE) [Concomitant]
     Active Substance: DOCUSATE

REACTIONS (7)
  - Catatonia [None]
  - Vertigo [None]
  - Aggression [None]
  - Balance disorder [None]
  - Hyperresponsive to stimuli [None]
  - Fall [None]
  - Eye movement disorder [None]

NARRATIVE: CASE EVENT DATE: 20140801
